FAERS Safety Report 18402566 (Version 1)
Quarter: 2020Q4

REPORT INFORMATION
  Report Type: Spontaneous
  Country: TR (occurrence: TR)
  Receive Date: 20201020
  Receipt Date: 20201020
  Transmission Date: 20210114
  Serious: Yes (Other)
  Sender: FDA-Public Use
  Company Number: TR-PFIZER INC-2020404216

PATIENT

DRUGS (1)
  1. SUTENT [Suspect]
     Active Substance: SUNITINIB MALATE

REACTIONS (1)
  - Pneumothorax [Unknown]
